FAERS Safety Report 9189440 (Version 2)
Quarter: 2013Q2

REPORT INFORMATION
  Report Type: Spontaneous
  Country: US (occurrence: US)
  Receive Date: 20130326
  Receipt Date: 20130403
  Transmission Date: 20140414
  Serious: Yes (Other)
  Sender: FDA-Public Use
  Company Number: PHEH2013US006376

PATIENT
  Age: 8 Year
  Sex: Male
  Weight: 95 kg

DRUGS (6)
  1. TRILEPTAL [Suspect]
     Indication: BIPOLAR DISORDER
     Dosage: 150 MG DAILY
     Route: 048
     Dates: start: 20110908, end: 20120226
  2. METHYLPHENIDATE [Suspect]
     Indication: ATTENTION DEFICIT/HYPERACTIVITY DISORDER
     Dosage: 10 MG, UNK
  3. METHYLPHENIDATE [Suspect]
     Dosage: 20 MG, UNK
  4. ADDERALL XR [Concomitant]
     Indication: ATTENTION DEFICIT/HYPERACTIVITY DISORDER
     Dosage: UNK UKN, UNK
     Dates: end: 20111007
  5. STRATTERA [Concomitant]
     Indication: ATTENTION DEFICIT/HYPERACTIVITY DISORDER
     Dosage: UNK UKN, UNK
     Dates: end: 20111007
  6. CONCERTA LP [Concomitant]
     Indication: ATTENTION DEFICIT/HYPERACTIVITY DISORDER
     Dosage: UNK UKN, UNK

REACTIONS (16)
  - Drug withdrawal syndrome [Unknown]
  - Overdose [Unknown]
  - Psychosexual disorder [Unknown]
  - Emotional disorder [Unknown]
  - Speech disorder [Unknown]
  - Anxiety [Unknown]
  - Weight increased [Unknown]
  - Influenza [Unknown]
  - Hyperhidrosis [Unknown]
  - Motor dysfunction [Recovering/Resolving]
  - Diarrhoea [Unknown]
  - Aggression [Unknown]
  - Disturbance in attention [Unknown]
  - Abdominal pain upper [Recovering/Resolving]
  - Dizziness [Recovering/Resolving]
  - Incorrect dose administered [Unknown]
